FAERS Safety Report 8488615-5 (Version None)
Quarter: 2012Q3

REPORT INFORMATION
  Report Type: 
  Country: None (occurrence: None)
  Receive Date: 20120705
  Receipt Date: 20120629
  Transmission Date: 20120928
  Serious: Yes (Other)
  Sender: FDA-Public Use
  Company Number: PHEH2012US012736

PATIENT
  Sex: Female

DRUGS (2)
  1. CLOPIDOGREL [Concomitant]
  2. GILENYA [Suspect]
     Dosage: UNK UKN, UNK
     Route: 048
     Dates: start: 20110101

REACTIONS (6)
  - HYPOAESTHESIA [None]
  - VEIN DISORDER [None]
  - EYE SWELLING [None]
  - ARTERIOSCLEROSIS [None]
  - GAIT DISTURBANCE [None]
  - SENSORY DISTURBANCE [None]
